FAERS Safety Report 8772509 (Version 1)
Quarter: 2012Q4

REPORT INFORMATION
  Report Type: 
  Country: US (occurrence: US)
  Receive Date: 20120905
  Receipt Date: 20120905
  Transmission Date: 20130627
  Serious: Yes (Death)
  Sender: FDA-Public Use
  Company Number: US-CELGENEUS-163-20785-12072835

PATIENT
  Age: 66 Year
  Sex: Female

DRUGS (1)
  1. THALOMID [Suspect]
     Indication: MALIGNANT NEOPLASM OF UTERUS, PART UNSPECIFIED
     Dosage: 200 Milligram
     Route: 048
     Dates: start: 200708

REACTIONS (1)
  - Uterine cancer [Fatal]
